FAERS Safety Report 5789328-0 (Version None)
Quarter: 2008Q2

REPORT INFORMATION
  Report Type: 
  Country: None (occurrence: None)
  Receive Date: 20080626
  Receipt Date: 20080616
  Transmission Date: 20081010
  Serious: Yes (Hospitalization)
  Sender: FDA-Public Use
  Company Number: ID-MERCK-0806USA03248

PATIENT
  Age: 28 Year
  Sex: Female

DRUGS (5)
  1. VYTORIN [Suspect]
     Indication: HYPERCHOLESTEROLAEMIA
     Route: 048
     Dates: start: 20080401, end: 20080401
  2. PLETAL [Concomitant]
     Indication: PROPHYLAXIS
     Route: 065
  3. Q-10 [Concomitant]
     Indication: ANTIOXIDANT THERAPY
     Route: 065
  4. ASPIRIN [Concomitant]
     Indication: THROMBOSIS
     Route: 065
  5. [THERAPY UNSPECIFIED] [Concomitant]
     Route: 065

REACTIONS (3)
  - EYELID OEDEMA [None]
  - LIP SWELLING [None]
  - SKIN EXFOLIATION [None]
